FAERS Safety Report 25989646 (Version 1)
Quarter: 2025Q4

REPORT INFORMATION
  Report Type: Spontaneous
  Country: US (occurrence: None)
  Receive Date: 20251031
  Receipt Date: 20251031
  Transmission Date: 20260118
  Serious: No
  Sender: FDA-CTU
  Company Number: None

PATIENT
  Age: 110 Year
  Sex: Male

DRUGS (1)
  1. ORENCIA [Suspect]
     Active Substance: ABATACEPT
     Dosage: OTHER STRENGTH : 87.5 MILLIGRAM(S)/;?OTHER QUANTITY : 87.5/07;?

REACTIONS (1)
  - Headache [None]

NARRATIVE: CASE EVENT DATE: 20251030
